FAERS Safety Report 24880500 (Version 2)
Quarter: 2025Q1

REPORT INFORMATION
  Report Type: Spontaneous
  Country: US (occurrence: US)
  Receive Date: 20250123
  Receipt Date: 20250207
  Transmission Date: 20250408
  Serious: Yes (Life-Threatening, Hospitalization)
  Sender: TEVA
  Company Number: US-TEVA-VS-3287543

PATIENT
  Age: 83 Year
  Sex: Female

DRUGS (6)
  1. PANTOPRAZOLE [Suspect]
     Active Substance: PANTOPRAZOLE
     Indication: Pancreatitis acute
     Route: 065
  2. MELOXICAM [Suspect]
     Active Substance: MELOXICAM
     Indication: Osteoarthritis
     Route: 065
  3. DONEPEZIL [Concomitant]
     Active Substance: DONEPEZIL
     Indication: Dementia Alzheimer^s type
     Route: 065
  4. ASPIRIN [Suspect]
     Active Substance: ASPIRIN
     Indication: Hypertension
     Route: 065
  5. LISINOPRIL [Concomitant]
     Active Substance: LISINOPRIL
     Indication: Hypertension
     Route: 065
  6. MORPHINE [Suspect]
     Active Substance: MORPHINE
     Indication: Pancreatitis acute
     Route: 065

REACTIONS (7)
  - Duodenal ulcer [Unknown]
  - Sinus tachycardia [Unknown]
  - Hypoxia [Unknown]
  - Drug ineffective [Unknown]
  - Cardiac arrest [Unknown]
  - Cholelithiasis [Unknown]
  - Acute kidney injury [Unknown]
